FAERS Safety Report 24048589 (Version 4)
Quarter: 2024Q3

REPORT INFORMATION
  Report Type: Report from Study
  Country: BR (occurrence: BR)
  Receive Date: 20240704
  Receipt Date: 20240718
  Transmission Date: 20241016
  Serious: Yes (Other)
  Sender: JOHNSON AND JOHNSON
  Company Number: BR-JNJFOC-20240702421

PATIENT
  Age: 49 Year
  Sex: Male
  Weight: 60 kg

DRUGS (1)
  1. INFLIXIMAB [Suspect]
     Active Substance: INFLIXIMAB
     Indication: Product used for unknown indication
     Dosage: LAST INFUSION 03-JUL-2024
     Route: 041
     Dates: start: 201908

REACTIONS (4)
  - Disease progression [Not Recovered/Not Resolved]
  - Haemorrhage [Not Recovered/Not Resolved]
  - Malaise [Not Recovered/Not Resolved]
  - Drug ineffective [Unknown]
